FAERS Safety Report 21676008 (Version 2)
Quarter: 2023Q4

REPORT INFORMATION
  Report Type: Spontaneous
  Country: US (occurrence: US)
  Receive Date: 20221202
  Receipt Date: 20231208
  Transmission Date: 20240109
  Serious: No
  Sender: FDA-Public Use
  Company Number: US-NOVOPROD-966054

PATIENT
  Age: 29 Year
  Sex: Female

DRUGS (2)
  1. NOVOLIN N [Suspect]
     Active Substance: INSULIN HUMAN
     Indication: Type 1 diabetes mellitus
     Dosage: UNK
     Route: 058
     Dates: start: 20220616
  2. NOVOLIN R [Suspect]
     Active Substance: INSULIN HUMAN
     Indication: Type 1 diabetes mellitus
     Dosage: UNK
     Route: 058
     Dates: start: 202205

REACTIONS (2)
  - Product contamination with body fluid [Not Recovered/Not Resolved]
  - Blood glucose increased [Not Recovered/Not Resolved]

NARRATIVE: CASE EVENT DATE: 20220616
